FAERS Safety Report 8152341-2 (Version None)
Quarter: 2012Q1

REPORT INFORMATION
  Report Type: 
  Country: None (occurrence: None)
  Receive Date: 20120221
  Receipt Date: 20120207
  Transmission Date: 20120608
  Serious: Yes (Other)
  Sender: FDA-Public Use
  Company Number: US-JNJFOC-20120110596

PATIENT
  Sex: Female

DRUGS (7)
  1. PENTASA [Concomitant]
     Route: 065
  2. STEROIDS NOS [Concomitant]
     Indication: PREMEDICATION
     Route: 065
  3. REMICADE [Suspect]
     Indication: CROHN'S DISEASE
     Route: 042
  4. REMICADE [Suspect]
     Route: 042
     Dates: start: 20120117
  5. ANTIHISTAMINE [Concomitant]
     Indication: PREMEDICATION
     Route: 065
  6. HYOSCYAMINE [Concomitant]
     Route: 065
  7. ELAVIL [Concomitant]
     Route: 065

REACTIONS (1)
  - TEMPOROMANDIBULAR JOINT SYNDROME [None]
